FAERS Safety Report 7646814-6 (Version None)
Quarter: 2011Q3

REPORT INFORMATION
  Report Type: 
  Country: None (occurrence: None)
  Receive Date: 20110729
  Receipt Date: 20110729
  Transmission Date: 20111222
  Serious: Yes (Other)
  Sender: FDA-Public Use
  Company Number: None

PATIENT
  Age: 43 Year
  Sex: Female
  Weight: 85.2762 kg

DRUGS (2)
  1. LYSTEDA [Suspect]
     Indication: UTERINE LEIOMYOMA
     Dosage: 3X ONCE A DAY
     Dates: start: 20101101, end: 20101201
  2. LYSTEDA [Suspect]
     Indication: MUSCLE SPASMS
     Dosage: 3X ONCE A DAY
     Dates: start: 20101101, end: 20101201

REACTIONS (1)
  - ALOPECIA [None]
